FAERS Safety Report 8560404-2 (Version None)
Quarter: 2012Q3

REPORT INFORMATION
  Report Type: 
  Country: None (occurrence: None)
  Receive Date: 20120802
  Receipt Date: 20120720
  Transmission Date: 20120928
  Serious: Yes (Hospitalization)
  Sender: FDA-Public Use
  Company Number: US-JNJFOC-20120711513

PATIENT
  Age: 87 Year
  Sex: Female

DRUGS (9)
  1. ATENOLOL [Concomitant]
  2. XARELTO [Suspect]
     Indication: ATRIAL FIBRILLATION
     Route: 065
  3. AMIODARONE HCL [Concomitant]
     Indication: ATRIAL FIBRILLATION
  4. PRAVASTATIN [Concomitant]
     Indication: HYPERCHOLESTEROLAEMIA
  5. LOSARTAN POTASSIUM [Concomitant]
  6. KEFLEX [Concomitant]
     Indication: CELLULITIS
  7. XARELTO [Suspect]
     Indication: CEREBROVASCULAR ACCIDENT PROPHYLAXIS
     Route: 065
  8. IBUPROFEN [Concomitant]
     Route: 048
  9. TYLENOL PM [Concomitant]

REACTIONS (4)
  - HAEMATOMA [None]
  - FALL [None]
  - HAEMOGLOBIN DECREASED [None]
  - HAEMATOCRIT DECREASED [None]
